FAERS Safety Report 17680965 (Version 3)
Quarter: 2021Q1

REPORT INFORMATION
  Report Type: Spontaneous
  Country: US (occurrence: US)
  Receive Date: 20200417
  Receipt Date: 20210122
  Transmission Date: 20210419
  Serious: Yes (Other)
  Sender: FDA-Public Use
  Company Number: US-LUNDBECK-DKLU3015314

PATIENT
  Age: 59 Year
  Sex: Female

DRUGS (3)
  1. NORTHERA [Suspect]
     Active Substance: DROXIDOPA
     Indication: DIZZINESS
     Route: 048
     Dates: start: 20200330
  2. NORTHERA [Suspect]
     Active Substance: DROXIDOPA
     Indication: PARKINSON^S DISEASE
     Route: 048
     Dates: start: 202003
  3. NORTHERA [Suspect]
     Active Substance: DROXIDOPA
     Route: 048
     Dates: start: 202012

REACTIONS (9)
  - Tension [Unknown]
  - Headache [Unknown]
  - Anxiety [Unknown]
  - Speech disorder [Unknown]
  - Hemiparesis [Unknown]
  - Dizziness [Unknown]
  - Vision blurred [Unknown]
  - Hypotension [Unknown]
  - Pollakiuria [Unknown]

NARRATIVE: CASE EVENT DATE: 202003
